FAERS Safety Report 19356161 (Version 1)
Quarter: 2021Q2

REPORT INFORMATION
  Report Type: Report from Study
  Country: US (occurrence: US)
  Receive Date: 20210602
  Receipt Date: 20210602
  Transmission Date: 20210717
  Serious: Yes (Other)
  Sender: FDA-Public Use
  Company Number: US-TAIHO ONCOLOGY  INC-EU-2021-01643

PATIENT
  Age: 85 Year
  Sex: Male

DRUGS (10)
  1. ONDANSETRON [Concomitant]
     Active Substance: ONDANSETRON
  2. SERTRALINE [Concomitant]
     Active Substance: SERTRALINE HYDROCHLORIDE
  3. GABAPENTIN. [Concomitant]
     Active Substance: GABAPENTIN
  4. VITAMIN A+D [Concomitant]
  5. CALCIUM [Concomitant]
     Active Substance: CALCIUM
  6. LONSURF [Suspect]
     Active Substance: TIPIRACIL HYDROCHLORIDE\TRIFLURIDINE
     Indication: RECTAL CANCER
     Dosage: CYCLE UNKNOWN
     Route: 048
     Dates: start: 20200512
  7. LUTEIN [Concomitant]
     Active Substance: LUTEIN
  8. VITAMIN D3 [Concomitant]
     Active Substance: CHOLECALCIFEROL
  9. IMODIUM [Concomitant]
     Active Substance: LOPERAMIDE HYDROCHLORIDE
  10. SELENIUM [Concomitant]
     Active Substance: SELENIUM

REACTIONS (1)
  - Pleural effusion [Not Recovered/Not Resolved]

NARRATIVE: CASE EVENT DATE: 20210501
